FAERS Safety Report 8555240-7 (Version None)
Quarter: 2012Q3

REPORT INFORMATION
  Report Type: 
  Country: None (occurrence: None)
  Receive Date: 20120731
  Receipt Date: 20120601
  Transmission Date: 20120928
  Serious: No
  Sender: FDA-Public Use
  Company Number: US-ASTRAZENECA-2012SE36779

PATIENT
  Age: 53 Year
  Sex: Female

DRUGS (3)
  1. SEROQUEL [Suspect]
     Route: 048
  2. SEROQUEL [Suspect]
     Indication: BIPOLAR DISORDER
     Route: 048
     Dates: start: 20100101
  3. SEROQUEL [Suspect]
     Route: 048

REACTIONS (6)
  - COUGH [None]
  - FATIGUE [None]
  - DRUG DOSE OMISSION [None]
  - CONFUSIONAL STATE [None]
  - INSOMNIA [None]
  - INCREASED APPETITE [None]
